FAERS Safety Report 4615848-8 (Version None)
Quarter: 2005Q1

REPORT INFORMATION
  Report Type: 
  Country: None (occurrence: None)
  Receive Date: 20050311
  Receipt Date: 20050127
  Transmission Date: 20050727
  Serious: No
  Sender: FDA-Public Use
  Company Number: 2005-BP-01227BP

PATIENT
  Age: 75 Year
  Sex: Male

DRUGS (3)
  1. SPIRIVA [Suspect]
     Indication: RHINORRHOEA
     Dosage: 18 MCG (18 MCG), IH
     Route: 055
     Dates: start: 20041201, end: 20050101
  2. SPIRIVA [Suspect]
  3. ATROVENT [Concomitant]

REACTIONS (2)
  - CHEST PAIN [None]
  - DRY MOUTH [None]
